FAERS Safety Report 9649708 (Version 1)
Quarter: 2013Q4

REPORT INFORMATION
  Report Type: Report from Study
  Country: BR (occurrence: BR)
  Receive Date: 20131028
  Receipt Date: 20131028
  Transmission Date: 20140711
  Serious: Yes (Other)
  Sender: FDA-Public Use
  Company Number: PHHY2013BR119415

PATIENT
  Age: 72 Year
  Sex: Female

DRUGS (4)
  1. CAPTOPRIL [Suspect]
     Indication: HYPERTENSION
     Dosage: 1 DF, TID
     Route: 048
  2. PRESSAT [Suspect]
  3. SELOZOK [Suspect]
     Indication: ARRHYTHMIA
  4. ARADOIS [Suspect]

REACTIONS (7)
  - Arrhythmia [Unknown]
  - Cerebrovascular accident [Unknown]
  - Blood pressure increased [Unknown]
  - Blood pressure fluctuation [Unknown]
  - Paraesthesia [Unknown]
  - Drug ineffective [Recovered/Resolved]
  - Malaise [Unknown]
